FAERS Safety Report 22077938 (Version 1)
Quarter: 2023Q1

REPORT INFORMATION
  Report Type: Spontaneous
  Country: US (occurrence: None)
  Receive Date: 20230308
  Receipt Date: 20230308
  Transmission Date: 20230417
  Serious: No
  Sender: FDA-Public Use
  Company Number: None

PATIENT
  Age: 75 Year
  Sex: Female
  Weight: 43.0 kg

DRUGS (24)
  1. CAPECITABINE [Suspect]
     Active Substance: CAPECITABINE
     Indication: Oesophageal carcinoma
     Dosage: FREQUENCY : TWICE A DAY;?
     Route: 048
  2. CAPECITABINE [Suspect]
     Active Substance: CAPECITABINE
  3. APREPITANT [Concomitant]
     Active Substance: APREPITANT
  4. ATORVASTATIN [Concomitant]
     Active Substance: ATORVASTATIN
  5. CARBOPLATIN [Concomitant]
     Active Substance: CARBOPLATIN
  6. DEXAMETHASONE [Concomitant]
     Active Substance: DEXAMETHASONE
  7. DIAZEPAM [Concomitant]
     Active Substance: DIAZEPAM
  8. DIPHENHYDRAMINE [Concomitant]
     Active Substance: DIPHENHYDRAMINE
  9. EPINEPHRINE [Concomitant]
     Active Substance: EPINEPHRINE
  10. FLUOROURACIL [Concomitant]
     Active Substance: FLUOROURACIL
  11. LEUCOVORIN [Concomitant]
     Active Substance: LEUCOVORIN
  12. METHYLPREDNISOLONE [Concomitant]
     Active Substance: METHYLPREDNISOLONE
  13. MIRALAX [Concomitant]
     Active Substance: POLYETHYLENE GLYCOL 3350
  14. MIRTAZAPINE [Concomitant]
     Active Substance: MIRTAZAPINE
  15. NAPHAZOLINE [Concomitant]
     Active Substance: NAPHAZOLINE\NAPHAZOLINE HYDROCHLORIDE
  16. NIVOLUMAB [Concomitant]
     Active Substance: NIVOLUMAB
  17. NORCO [Concomitant]
     Active Substance: ACETAMINOPHEN\HYDROCODONE BITARTRATE
  18. NORTRIPTYLINE [Concomitant]
     Active Substance: NORTRIPTYLINE
  19. NYSTATIN [Concomitant]
     Active Substance: NYSTATIN
  20. ONDANSETRON [Concomitant]
     Active Substance: ONDANSETRON
  21. OXALIPLATIN [Concomitant]
     Active Substance: OXALIPLATIN
  22. OXYBUTYNIN [Concomitant]
     Active Substance: OXYBUTYNIN
  23. PACLITAXEL [Concomitant]
     Active Substance: PACLITAXEL
  24. SILVADENE [Concomitant]
     Active Substance: SILVER SULFADIAZINE

REACTIONS (1)
  - Hospice care [None]
